FAERS Safety Report 4714986-9 (Version None)
Quarter: 2005Q3

REPORT INFORMATION
  Report Type: 
  Country: None (occurrence: None)
  Receive Date: 20050715
  Receipt Date: 20050607
  Transmission Date: 20060218
  Serious: No
  Sender: FDA-Public Use
  Company Number: US-BOEHRINGER INGELHEIM PHARMACEUTICALS, INC.-2005-BP-09495BP

PATIENT
  Age: 81 Year
  Sex: Female
  Weight: 59 kg

DRUGS (24)
  1. SPIRIVA [Suspect]
     Indication: CHRONIC OBSTRUCTIVE PULMONARY DISEASE
     Route: 055
     Dates: start: 20050516, end: 20050516
  2. DUONEB [Concomitant]
     Indication: CHRONIC OBSTRUCTIVE PULMONARY DISEASE
  3. OXYGEN [Concomitant]
     Dosage: 2-4 LPM PRN
     Route: 055
     Dates: start: 20041005
  4. LASIX [Concomitant]
     Route: 048
     Dates: start: 20041005
  5. POTASSIUM CHLORIDE [Concomitant]
     Route: 048
     Dates: start: 20041005, end: 20050331
  6. ZESTRIL [Concomitant]
     Route: 048
     Dates: start: 20041005
  7. THEOPHYLLINE [Concomitant]
     Dosage: 300MG BID
     Route: 048
     Dates: start: 20041005, end: 20050331
  8. POTASSIUM CHLORIDE [Concomitant]
     Route: 048
     Dates: start: 20050331
  9. ZAFIRLUKAST [Concomitant]
     Dosage: 20MG BID
     Route: 048
     Dates: start: 20041005
  10. VERAPAMIL [Concomitant]
     Dosage: 40MG TID
     Route: 048
     Dates: start: 20041005
  11. HUMULIN [Concomitant]
     Dosage: 6-10 UNITS QID
     Route: 048
     Dates: start: 20041005, end: 20041008
  12. INSULIN [Concomitant]
     Route: 058
     Dates: start: 20041008
  13. NEURONTIN [Concomitant]
     Indication: PAIN
     Route: 048
     Dates: start: 20041005, end: 20041105
  14. SOMA [Concomitant]
     Indication: PAIN
     Dosage: 350MG Q 12 HOURS
     Route: 048
     Dates: start: 20041005, end: 20041005
  15. NORVASC [Concomitant]
     Route: 048
     Dates: start: 20041005, end: 20050524
  16. ULTRACET [Concomitant]
     Indication: PAIN
     Dosage: 1 TABLET EVERY 6 HOURS
     Route: 048
     Dates: start: 20041005
  17. DARVOCET-N 100 [Concomitant]
     Indication: PAIN
     Dosage: Q6H PRN
     Route: 048
     Dates: start: 20041005, end: 20041005
  18. ALBUTEROL [Concomitant]
     Dosage: 3 ML TID
     Route: 055
     Dates: start: 20041005
  19. ATROVENT [Concomitant]
     Dosage: 2 ML TID
     Route: 055
     Dates: start: 20041005
  20. ZITHROMAX [Concomitant]
     Route: 048
     Dates: start: 20041005, end: 20041010
  21. ROXANOL [Concomitant]
     Indication: DYSPNOEA
     Dates: start: 20041104
  22. LEXAPRO [Concomitant]
     Route: 048
     Dates: start: 20050331
  23. ADVAIR DISKUS 100/50 [Concomitant]
     Dosage: 1 PUFF BID
     Route: 055
     Dates: start: 20041105
  24. GLUCOPHAGE [Concomitant]
     Dosage: 500MG BID
     Route: 048
     Dates: start: 20041223

REACTIONS (4)
  - BRONCHOSPASM [None]
  - COUGH [None]
  - DYSPNOEA EXACERBATED [None]
  - WHEEZING [None]
